FAERS Safety Report 19191563 (Version 1)
Quarter: 2021Q2

REPORT INFORMATION
  Report Type: Spontaneous
  Country: US (occurrence: US)
  Receive Date: 20210429
  Receipt Date: 20210429
  Transmission Date: 20210717
  Serious: Yes (Hospitalization, Other)
  Sender: FDA-Public Use
  Company Number: US-CIPLA LTD.-2021US03050

PATIENT

DRUGS (6)
  1. VINCRISTINE [Suspect]
     Active Substance: VINCRISTINE
     Indication: MULTIPLE ENDOCRINE NEOPLASIA TYPE 2B
     Dosage: UNK, 1 CYCLE
     Route: 065
  2. VINCRISTINE [Suspect]
     Active Substance: VINCRISTINE
     Indication: METASTASES TO BONE
  3. DACARBAZINE. [Suspect]
     Active Substance: DACARBAZINE
     Indication: METASTASES TO BONE
  4. CYCLOPHOSPHAMIDE. [Suspect]
     Active Substance: CYCLOPHOSPHAMIDE
     Indication: METASTASES TO BONE
  5. DACARBAZINE. [Suspect]
     Active Substance: DACARBAZINE
     Indication: MULTIPLE ENDOCRINE NEOPLASIA TYPE 2B
     Dosage: UNK, 1 CYCLE
     Route: 065
  6. CYCLOPHOSPHAMIDE. [Suspect]
     Active Substance: CYCLOPHOSPHAMIDE
     Indication: MULTIPLE ENDOCRINE NEOPLASIA TYPE 2B
     Dosage: UNK, 1 CYCLE
     Route: 065

REACTIONS (1)
  - Femur fracture [Unknown]
